FAERS Safety Report 5000483-2 (Version None)
Quarter: 2006Q2

REPORT INFORMATION
  Report Type: 
  Country: None (occurrence: None)
  Receive Date: 20060512
  Receipt Date: 20060502
  Transmission Date: 20061013
  Serious: Yes (Hospitalization, Other)
  Sender: FDA-Public Use
  Company Number: PHEH2006US05817

PATIENT
  Age: 46 Year
  Sex: Female
  Weight: 77.097 kg

DRUGS (2)
  1. LAMISIL [Suspect]
     Indication: NAIL TINEA
     Route: 048
  2. KETEK [Concomitant]

REACTIONS (4)
  - ABDOMINAL PAIN [None]
  - GASTRIC HYPOMOTILITY [None]
  - GASTRIC ULCER PERFORATION [None]
  - ROUX LOOP CONVERSION [None]
